FAERS Safety Report 6939133-4 (Version None)
Quarter: 2010Q3

REPORT INFORMATION
  Report Type: 
  Country: None (occurrence: None)
  Receive Date: 20100824
  Receipt Date: 20100812
  Transmission Date: 20110219
  Serious: Yes (Hospitalization, Other)
  Sender: FDA-Public Use
  Company Number: US-PFIZER INC-2010063350

PATIENT
  Sex: Male

DRUGS (2)
  1. CHANTIX [Suspect]
     Indication: SMOKING CESSATION THERAPY
     Dosage: 1 MG, TABLET PER DAY
     Dates: start: 20080506, end: 20080610
  2. CHANTIX [Suspect]
     Indication: UPPER RESPIRATORY TRACT INFECTION

REACTIONS (6)
  - ANXIETY [None]
  - DEPRESSION [None]
  - MUSCLE SPASMS [None]
  - PARANOIA [None]
  - SLEEP DISORDER [None]
  - SUICIDE ATTEMPT [None]
